FAERS Safety Report 11388380 (Version 1)
Quarter: 2015Q3

REPORT INFORMATION
  Report Type: Spontaneous
  Country: US (occurrence: US)
  Receive Date: 20150817
  Receipt Date: 20150817
  Transmission Date: 20151125
  Serious: No
  Sender: FDA-Public Use
  Company Number: US-BAUSCH-BL-2015-001859

PATIENT
  Age: 48 Year
  Sex: Male
  Weight: 81.72 kg

DRUGS (3)
  1. DORZOLAMIDE HYDROCHLORIDE OPHTHALMIC SOLUTION 2% [Suspect]
     Active Substance: DORZOLAMIDE HYDROCHLORIDE
     Indication: POSTOPERATIVE CARE
     Dosage: ONE DROP FOUR TIMES DAILY WITH A TAPER SCHEDULE DOWN TO TWICE DAILY ON 12/DEC/2014
     Route: 047
     Dates: start: 20141202, end: 20141222
  2. KETOROLAC [Suspect]
     Active Substance: KETOROLAC\KETOROLAC TROMETHAMINE
     Indication: POSTOPERATIVE CARE
     Dosage: ONE DROP FOUR TIMES DAILY WITH A TAPER SCHEDULE DOWN TO TWICE DAILY ON 12-DEC-2014
     Route: 047
     Dates: start: 20141202, end: 20141222
  3. PRED FORTE [Suspect]
     Active Substance: PREDNISOLONE ACETATE
     Indication: POSTOPERATIVE CARE
     Dosage: ONE IN EACH EYE TWELVE TIMES A DAY WITH A TAPER SCHEDULE?DOWN TO SIX TIMES DAILY
     Route: 047
     Dates: start: 20141202, end: 20141222

REACTIONS (2)
  - Conjunctivitis [Not Recovered/Not Resolved]
  - Off label use [None]

NARRATIVE: CASE EVENT DATE: 201412
